FAERS Safety Report 13159907 (Version 6)
Quarter: 2017Q3

REPORT INFORMATION
  Report Type: Report from Study
  Country: FR (occurrence: FR)
  Receive Date: 20170127
  Receipt Date: 20170925
  Transmission Date: 20171127
  Serious: Yes (Death, Hospitalization)
  Sender: FDA-Public Use
  Company Number: FR-BAYER-2016-196650

PATIENT
  Age: 65 Year
  Sex: Female
  Weight: 92 kg

DRUGS (22)
  1. STIVARGA [Suspect]
     Active Substance: REGORAFENIB
     Indication: COLORECTAL CANCER METASTATIC
     Dosage: DAILY DOSE 160 MG
     Dates: start: 20161007, end: 20161009
  2. SPASFON [Concomitant]
     Active Substance: PHLOROGLUCINOL\1,3,5-TRIMETHOXYBENZENE
     Dosage: 480 MG, QD
     Dates: start: 20160524, end: 20161009
  3. LOPERAMIDE [Concomitant]
     Active Substance: LOPERAMIDE
     Dosage: 16 MG, QD
     Dates: start: 20120402, end: 20161011
  4. BISOPROLOL [Concomitant]
     Active Substance: BISOPROLOL
     Dosage: 10 MG, QD
     Dates: start: 201212
  5. EUPRESSYL [Concomitant]
     Active Substance: URAPIDIL
     Dosage: 60 MG, QD
     Dates: start: 2013, end: 20161009
  6. ENOXAPARIN [Concomitant]
     Active Substance: ENOXAPARIN
     Dosage: UNK (TOTAL DAILY DOSE 0.4 ML)
     Dates: start: 20161012, end: 20161012
  7. PERFALGAN [Concomitant]
     Active Substance: ACETAMINOPHEN
     Dosage: UNK (TOTAL DAILY DOSE 1000 MG)
     Dates: start: 20161012, end: 20161012
  8. DEXCHLORPHENIRAMINE [Concomitant]
     Active Substance: DEXCHLORPHENIRAMINE
     Dosage: DAILY DOSE 5 MG
     Dates: start: 20161010, end: 20161010
  9. DOLIPRANE [Concomitant]
     Active Substance: ACETAMINOPHEN
     Dosage: 1000 MG, QD
     Dates: start: 20120417, end: 20161009
  10. LASILIX [Concomitant]
     Active Substance: FUROSEMIDE
     Dosage: 60 MG, QD
     Dates: start: 2014
  11. LERCANIDIPINE [Concomitant]
     Active Substance: LERCANIDIPINE
     Dosage: 20 MG, QD
     Dates: start: 2016
  12. KERATINAMIN [Concomitant]
     Active Substance: UREA
     Indication: DRUG TOXICITY PROPHYLAXIS
     Dosage: UNK
     Dates: start: 201605
  13. NEFOPAM [Concomitant]
     Active Substance: NEFOPAM
     Dosage: UNK (TOTAL DAILY DOSE 60 MG)
     Dates: start: 20161011, end: 20161014
  14. STIVARGA [Suspect]
     Active Substance: REGORAFENIB
     Indication: COLORECTAL CANCER METASTATIC
     Dosage: DAILY DOSE 80 MG
     Dates: start: 20161025, end: 20161025
  15. IMOVANE [Concomitant]
     Active Substance: ZOPICLONE
     Dosage: 7.5 MG, QD
     Dates: start: 20120131, end: 20161011
  16. ALPRAZOLAM. [Concomitant]
     Active Substance: ALPRAZOLAM
     Dosage: 0.25 MG, QD
     Dates: start: 2016, end: 20161011
  17. VIAFLO GLUCOSE [Concomitant]
     Dosage: UNK, (TOTAL DAILY DOSE 41.67 ML/H)
     Dates: start: 20161010, end: 20161011
  18. EUPRESSYL [Concomitant]
     Active Substance: URAPIDIL
     Dosage: UNK, (TOTAL DAILY DOSE 120 MG)
     Dates: start: 20161010
  19. LEVOTHYROX [Concomitant]
     Active Substance: LEVOTHYROXINE
     Dosage: 150 ?G, QD
     Dates: start: 2011
  20. GLUCIDION [Concomitant]
     Active Substance: GLUCOSE, LIQUID\POTASSIUM CHLORIDE\SODIUM CHLORIDE
     Dosage: UNK, (TOTAL DAILY DOSE 41.67 ML/H)
     Dates: start: 20161010, end: 20161012
  21. STIVARGA [Suspect]
     Active Substance: REGORAFENIB
     Indication: COLORECTAL CANCER METASTATIC
     Dosage: 160 MG, QD (4 TABLETS 40MG)
     Dates: start: 20160926, end: 20161005
  22. SODIUM BICARBONATE. [Concomitant]
     Active Substance: SODIUM BICARBONATE
     Dosage: UNK (83 ML/H)
     Dates: start: 20161012, end: 20161013

REACTIONS (4)
  - Purpura [Recovered/Resolved]
  - Pancreatitis [Recovered/Resolved]
  - Rash macular [Recovered/Resolved]
  - Acute kidney injury [Recovered/Resolved]

NARRATIVE: CASE EVENT DATE: 20161004
